FAERS Safety Report 21441068 (Version 1)
Quarter: 2022Q4

REPORT INFORMATION
  Report Type: Spontaneous
  Country: FR (occurrence: FR)
  Receive Date: 20221011
  Receipt Date: 20221011
  Transmission Date: 20230113
  Serious: Yes (Other)
  Sender: FDA-Public Use
  Company Number: FR-AFSSAPS-CN20221264

PATIENT
  Age: 51 Year
  Sex: Female

DRUGS (2)
  1. ASCLERA [Suspect]
     Active Substance: POLIDOCANOL
     Indication: Varicose vein
     Dosage: 1 ML INTO THE RIGHT GREAT SAPHENOUS VEIN IN THE LOWER 1/3 THIGH (SOLUTION FOR INJECTION, BATCH: UNK)
     Route: 042
     Dates: start: 20220421, end: 20220421
  2. ASCLERA [Suspect]
     Active Substance: POLIDOCANOL
     Indication: Varicose vein
     Dosage: 0.6 ML IN THE LEFT GREAT SAPHENOUS VEIN ABOVE THE KNEE AND BELOW THE KNEE^ (SOLUTION FOR INJECTION,
     Route: 042
     Dates: start: 20220505, end: 20220505

REACTIONS (2)
  - Chest discomfort [Recovered/Resolved]
  - Chest discomfort [Unknown]

NARRATIVE: CASE EVENT DATE: 20220421
